FAERS Safety Report 24040371 (Version 2)
Quarter: 2024Q3

REPORT INFORMATION
  Report Type: Report from Study
  Country: US (occurrence: US)
  Receive Date: 20240702
  Receipt Date: 20240715
  Transmission Date: 20241016
  Serious: Yes (Hospitalization)
  Sender: ROCHE
  Company Number: US-ROCHE-3546865

PATIENT
  Age: 78 Year
  Sex: Female
  Weight: 59.42 kg

DRUGS (1)
  1. ERIVEDGE [Suspect]
     Active Substance: VISMODEGIB
     Indication: Basal cell carcinoma
     Dosage: TAKE 1 CAPSULE BY MOUTH DAILY WITH OR WITHOUT FOOD
     Route: 048
     Dates: start: 2022

REACTIONS (6)
  - COVID-19 [Recovered/Resolved with Sequelae]
  - Visual impairment [Unknown]
  - Tremor [Unknown]
  - Vertigo [Unknown]
  - Ageusia [Not Recovered/Not Resolved]
  - Muscular weakness [Unknown]

NARRATIVE: CASE EVENT DATE: 20220101
